FAERS Safety Report 8540766-2 (Version None)
Quarter: 2012Q3

REPORT INFORMATION
  Report Type: 
  Country: None (occurrence: None)
  Receive Date: 20120726
  Receipt Date: 20120719
  Transmission Date: 20120928
  Serious: Yes (Other)
  Sender: FDA-Public Use
  Company Number: CA-JNJFOC-20111203345

PATIENT
  Sex: Female
  Weight: 101 kg

DRUGS (5)
  1. REMICADE [Suspect]
     Dosage: MAINTENANCE DOSE 17
     Route: 042
  2. REMICADE [Suspect]
     Route: 042
     Dates: start: 20120126
  3. LEVOTHYROXINE SODIUM [Concomitant]
     Indication: THYROID DISORDER
     Route: 065
  4. REMICADE [Suspect]
     Indication: CROHN'S DISEASE
     Route: 042
  5. BIRTH CONTROL PILLS [Concomitant]
     Route: 065

REACTIONS (1)
  - SINUS OPERATION [None]
